FAERS Safety Report 24020487 (Version 1)
Quarter: 2024Q2

REPORT INFORMATION
  Report Type: Report from Study
  Country: US (occurrence: US)
  Receive Date: 20240627
  Receipt Date: 20240627
  Transmission Date: 20240716
  Serious: Yes (Hospitalization, Other)
  Sender: FDA-Public Use
  Company Number: US-SANDOZ-SDZ2024US047856

PATIENT
  Sex: Female
  Weight: 79.819 kg

DRUGS (1)
  1. TREPROSTINIL [Suspect]
     Active Substance: TREPROSTINIL
     Indication: Pulmonary arterial hypertension
     Dosage: 60 NG/KG/ MI N,CONT
     Route: 042
     Dates: start: 20240506

REACTIONS (3)
  - Pneumonia [Unknown]
  - Vascular device infection [Unknown]
  - Fatigue [Unknown]
